FAERS Safety Report 12462435 (Version 1)
Quarter: 2016Q2

REPORT INFORMATION
  Report Type: Spontaneous
  Country: CN (occurrence: CN)
  Receive Date: 20160614
  Receipt Date: 20160614
  Transmission Date: 20160815
  Serious: Yes (Hospitalization)
  Sender: FDA-Public Use
  Company Number: CN-ASTRAZENECA-2016SE53702

PATIENT
  Age: 66 Year
  Sex: Male

DRUGS (6)
  1. NOVONORM [Concomitant]
     Active Substance: REPAGLINIDE
     Dates: start: 201508
  2. LANTUS [Concomitant]
     Active Substance: INSULIN GLARGINE
  3. INSULIN [Concomitant]
     Active Substance: INSULIN NOS
     Dosage: DOSAGE CHANGED TO 15 UNITS A DAY CURRENTLY
  4. BYETTA [Suspect]
     Active Substance: EXENATIDE
     Indication: TYPE 2 DIABETES MELLITUS
     Route: 058
     Dates: start: 20160513
  5. INSULIN [Concomitant]
     Active Substance: INSULIN NOS
     Dosage: HE INJECTED INSULIN 16 UNITS PREVIOUSLY
  6. BYETTA [Suspect]
     Active Substance: EXENATIDE
     Indication: TYPE 2 DIABETES MELLITUS
     Route: 058
     Dates: start: 201508

REACTIONS (2)
  - Blood glucose increased [Recovered/Resolved]
  - Injection site haemorrhage [Recovered/Resolved]

NARRATIVE: CASE EVENT DATE: 20160513
